FAERS Safety Report 5412911-9 (Version None)
Quarter: 2007Q3

REPORT INFORMATION
  Report Type: 
  Country: None (occurrence: None)
  Receive Date: 20070813
  Receipt Date: 20070803
  Transmission Date: 20080115
  Serious: Yes (Hospitalization, Disabling)
  Sender: FDA-Public Use
  Company Number: US-PFIZER INC-2005153559

PATIENT
  Sex: Female
  Weight: 52.6 kg

DRUGS (13)
  1. SUTENT [Suspect]
     Indication: BREAST CANCER METASTATIC
     Route: 048
  2. SYNTHROID [Concomitant]
     Route: 048
  3. ZOFRAN [Concomitant]
     Route: 042
  4. COLACE [Concomitant]
     Route: 048
  5. ESGIC [Concomitant]
     Route: 048
  6. KAY CIEL DURA-TABS [Concomitant]
     Route: 042
  7. MEGACE [Concomitant]
     Route: 048
  8. LEVAQUIN [Concomitant]
     Route: 042
  9. LASIX [Concomitant]
     Route: 042
  10. CYTOMEL [Concomitant]
     Route: 048
     Dates: start: 20051019, end: 20051118
  11. PREVACID [Concomitant]
     Route: 048
     Dates: start: 20050620, end: 20051118
  12. MAXIPIME [Concomitant]
     Route: 048
  13. ACETAMINOPHEN W/ CODEINE [Concomitant]
     Indication: PAIN
     Route: 048
     Dates: start: 20050906, end: 20051118

REACTIONS (9)
  - ABDOMINAL PAIN [None]
  - ASTHENIA [None]
  - DEHYDRATION [None]
  - GENERALISED OEDEMA [None]
  - HYPOALBUMINAEMIA [None]
  - NAUSEA [None]
  - ORAL INTAKE REDUCED [None]
  - RENAL FAILURE [None]
  - VOMITING [None]
